FAERS Safety Report 21439093 (Version 1)
Quarter: 2022Q4

REPORT INFORMATION
  Report Type: Spontaneous
  Country: US (occurrence: None)
  Receive Date: 20221007
  Receipt Date: 20221007
  Transmission Date: 20230112
  Serious: Yes (Hospitalization)
  Sender: FDA-Public Use
  Company Number: None

PATIENT
  Sex: Male

DRUGS (1)
  1. CAPECITABINE [Suspect]
     Active Substance: CAPECITABINE
     Dosage: 1000 BID ORAL?
     Route: 048

REACTIONS (6)
  - Diarrhoea [None]
  - Abdominal pain [None]
  - Asthenia [None]
  - Fall [None]
  - Urinary retention [None]
  - Product dose omission issue [None]
